FAERS Safety Report 8786352 (Version 2)
Quarter: 2012Q4

REPORT INFORMATION
  Report Type: 
  Country: BR (occurrence: BR)
  Receive Date: 20120914
  Receipt Date: 20121207
  Transmission Date: 20130627
  Serious: Yes (Other)
  Sender: FDA-Public Use
  Company Number: BR-PFIZER INC-2012225256

PATIENT
  Age: 74 Year
  Sex: Female
  Weight: 69 kg

DRUGS (4)
  1. CELEBRA [Suspect]
     Indication: PAIN IN SPINE
     Dosage: 1 capsule (200 mg), 2x/day
     Route: 048
     Dates: start: 20120216
  2. CELEBRA [Suspect]
     Indication: HERNIATED DISC
  3. CLORAN [Concomitant]
     Indication: HYPERTENSION
     Dosage: 5 mg, UNK
  4. ENALAPRIL [Concomitant]
     Indication: HYPERTENSION

REACTIONS (3)
  - Cataract [Unknown]
  - Drug effect decreased [Unknown]
  - Off label use [Unknown]
